FAERS Safety Report 7528273-7 (Version None)
Quarter: 2011Q2

REPORT INFORMATION
  Report Type: 
  Country: None (occurrence: None)
  Receive Date: 20110607
  Receipt Date: 20100618
  Transmission Date: 20111010
  Serious: No
  Sender: FDA-Public Use
  Company Number: US-ASTRAZENECA-2010SE28783

PATIENT
  Sex: Female

DRUGS (1)
  1. OMEPRAZOLE [Suspect]
     Route: 048

REACTIONS (5)
  - ABDOMINAL DISCOMFORT [None]
  - THROAT IRRITATION [None]
  - INSOMNIA [None]
  - GASTRIC DILATATION [None]
  - NAUSEA [None]
